FAERS Safety Report 7178167 (Version 10)
Quarter: 2012Q4

REPORT INFORMATION
  Report Type: 
  Country: JP (occurrence: JP)
  Receive Date: 20091116
  Receipt Date: 20121217
  Transmission Date: 20130627
  Serious: Yes (Hospitalization)
  Sender: FDA-Public Use
  Company Number: JP-BAYER-200914351BYL

PATIENT
  Age: 74 Year
  Sex: Male
  Weight: 43 kg

DRUGS (7)
  1. NEXAVAR [Suspect]
     Indication: CARCINOMA HEPATOCELLULAR
     Dosage: 400 mg, BID
     Route: 048
     Dates: start: 20091013, end: 20091024
  2. NEXAVAR [Suspect]
     Indication: CARCINOMA HEPATOCELLULAR
     Dosage: 400 mg, QD
     Route: 048
     Dates: start: 20091025, end: 20091026
  3. FUROSEMIDE [Concomitant]
     Dosage: one tablet int the morning
     Route: 048
  4. LIVACT [Concomitant]
     Dosage: 3 packages after each meal
     Route: 048
  5. ZINC SULFATE [Concomitant]
     Dosage: 600 mg after each meal
     Route: 048
  6. SPIRONOLACTONE [Concomitant]
     Dosage: one tablet in the morning
     Route: 048
  7. SENNA [Concomitant]
     Dosage: 2 tablets before sleep
     Route: 048

REACTIONS (1)
  - Stevens-Johnson syndrome [Recovering/Resolving]
